FAERS Safety Report 7125532-7 (Version None)
Quarter: 2010Q4

REPORT INFORMATION
  Report Type: 
  Country: None (occurrence: None)
  Receive Date: 20101129
  Receipt Date: 20101123
  Transmission Date: 20110411
  Serious: Yes (Other)
  Sender: FDA-Public Use
  Company Number: A0894894A

PATIENT
  Age: 82 Year
  Sex: Male
  Weight: 77 kg

DRUGS (7)
  1. EQUATE NTS 14MG [Suspect]
     Indication: SMOKING CESSATION THERAPY
     Route: 062
     Dates: start: 20101121, end: 20101122
  2. UNKNOWN [Concomitant]
  3. PRAVASTATIN [Concomitant]
  4. PLAVIX [Concomitant]
  5. ISOSORBIDE DINITRATE [Concomitant]
  6. ASPIRIN [Concomitant]
  7. DIOVAN [Concomitant]

REACTIONS (4)
  - APPLICATION SITE RASH [None]
  - HALLUCINATION [None]
  - NERVOUSNESS [None]
  - SUICIDAL IDEATION [None]
